FAERS Safety Report 10101455 (Version 1)
Quarter: 2014Q2

REPORT INFORMATION
  Report Type: Spontaneous
  Country: US (occurrence: None)
  Receive Date: 20140423
  Receipt Date: 20140423
  Transmission Date: 20141212
  Serious: No
  Sender: FDA-Public Use
  Company Number: None

PATIENT
  Age: 27 Year
  Sex: Male

DRUGS (1)
  1. TRAZODONE [Suspect]
     Dosage: TAKEN BY MOUTH AT BEDTIME

REACTIONS (2)
  - Drug dispensing error [None]
  - Intercepted drug dispensing error [None]
